FAERS Safety Report 21392038 (Version 1)
Quarter: 2022Q3

REPORT INFORMATION
  Report Type: Spontaneous
  Country: BR (occurrence: BR)
  Receive Date: 20220929
  Receipt Date: 20220929
  Transmission Date: 20221026
  Serious: Yes (Hospitalization)
  Sender: FDA-Public Use
  Company Number: BR-BIOMARINAP-BR-2022-145859

PATIENT

DRUGS (1)
  1. KUVAN [Suspect]
     Active Substance: SAPROPTERIN DIHYDROCHLORIDE
     Indication: Phenylketonuria
     Dosage: 10 MILLIGRAM/KILOGRAM
     Route: 065

REACTIONS (3)
  - Abortion spontaneous [Recovered/Resolved]
  - Depression [Unknown]
  - Maternal exposure during pregnancy [Recovered/Resolved]
